FAERS Safety Report 4391001-0 (Version None)
Quarter: 2004Q3

REPORT INFORMATION
  Report Type: 
  Country: None (occurrence: None)
  Receive Date: 20040701
  Receipt Date: 20040621
  Transmission Date: 20050211
  Serious: Yes (Disabling)
  Sender: FDA-Public Use
  Company Number: 2004GB01489

PATIENT
  Age: 62 Year
  Sex: Female

DRUGS (4)
  1. CRESTOR [Suspect]
     Indication: BLOOD CHOLESTEROL INCREASED
     Dosage: 10 MG QAM PO
     Route: 048
     Dates: start: 20040526, end: 20040528
  2. DIAZEPAM [Concomitant]
  3. ANAFRANIL [Concomitant]
  4. LIPITOR [Concomitant]

REACTIONS (1)
  - MUSCULOSKELETAL STIFFNESS [None]
